FAERS Safety Report 8136111-7 (Version None)
Quarter: 2012Q1

REPORT INFORMATION
  Report Type: 
  Country: None (occurrence: None)
  Receive Date: 20120214
  Receipt Date: 20120118
  Transmission Date: 20120608
  Serious: No
  Sender: FDA-Public Use
  Company Number: US-COVIDIEN/TYCO HEALTHCARE/MALLINCKRODT-T201102912

PATIENT
  Sex: Female

DRUGS (20)
  1. ASPIRIN [Concomitant]
     Indication: PROPHYLAXIS
     Dosage: 81 MG, QD
     Route: 048
  2. FOLIC ACID [Concomitant]
     Indication: SUPPLEMENTATION THERAPY
     Dosage: 1 MG, QD
     Route: 048
  3. ETODOLAC [Concomitant]
     Indication: ARTHRITIS
     Dosage: 400 MG, QD
     Route: 048
  4. VITAMIN B-12 [Concomitant]
     Indication: SUPPLEMENTATION THERAPY
     Dosage: 1 CAPSULE, QD
  5. LEVOTHYROXINE SODIUM [Concomitant]
     Dosage: 50 MEQ, QD
     Route: 048
  6. PRILOSEC [Concomitant]
     Indication: GASTROOESOPHAGEAL REFLUX DISEASE
     Dosage: 1 TABLET QD
     Route: 048
  7. DIAZEPAM [Concomitant]
     Indication: INSOMNIA
     Dosage: 5 MG, PRN AT BEDTIME (HS)
     Route: 048
  8. CLARINEX                           /01202601/ [Concomitant]
     Indication: SEASONAL ALLERGY
     Dosage: 5 MG, QD
     Route: 048
  9. SCHISANDRA [Concomitant]
     Indication: SUPPLEMENTATION THERAPY
     Dosage: 1 TAB, QD
     Route: 048
  10. VITAMIN D [Concomitant]
     Indication: SUPPLEMENTATION THERAPY
     Dosage: 2000 , QD
     Route: 048
  11. FENTANYL-100 [Suspect]
     Indication: PAIN
     Dosage: 75 UG/HR, 1 FTS EVERY 72 HOURS
     Dates: start: 20111210, end: 20111212
  12. ALTACE [Concomitant]
     Indication: BLOOD PRESSURE
     Dosage: 5 MG, QD
     Route: 048
  13. TOPROL-XL [Concomitant]
     Indication: BLOOD PRESSURE
     Dosage: 25 MG, QD
     Route: 048
  14. NORTRIPTYLINE HCL [Concomitant]
     Indication: NEUROPATHY PERIPHERAL
     Dosage: 20 MG, AT BEDTIME (HS)
     Route: 048
  15. TRICOR [Concomitant]
     Indication: BLOOD CHOLESTEROL INCREASED
     Dosage: 40 MG, QD
     Route: 048
  16. VICODIN [Concomitant]
     Indication: PAIN
     Dosage: 5/500 MG BID PRN
     Route: 048
  17. FISH OIL [Concomitant]
     Indication: SUPPLEMENTATION THERAPY
     Dosage: 1000 UNK, QD
     Route: 048
  18. MULTIVITAMIN [Concomitant]
     Indication: SUPPLEMENTATION THERAPY
     Dosage: 1 TABLET, QD
     Route: 048
  19. FENTANYL [Concomitant]
     Route: 062
  20. CALCIUM [Concomitant]
     Indication: SUPPLEMENTATION THERAPY
     Dosage: 1 TABLET, QD
     Route: 048

REACTIONS (3)
  - WITHDRAWAL SYNDROME [None]
  - APPLICATION SITE PAIN [None]
  - DRUG INEFFECTIVE [None]
